FAERS Safety Report 15137500 (Version 3)
Quarter: 2018Q4

REPORT INFORMATION
  Report Type: Spontaneous
  Country: CH (occurrence: CH)
  Receive Date: 20180712
  Receipt Date: 20181025
  Transmission Date: 20190204
  Serious: Yes (Other)
  Sender: FDA-Public Use
  Company Number: CH-GILEAD-2018-0349371

PATIENT
  Age: 58 Year
  Sex: Male

DRUGS (19)
  1. CANDESARTAN. [Concomitant]
     Active Substance: CANDESARTAN
     Dates: start: 2018
  2. VISCOTEARS [Concomitant]
     Active Substance: CARBOMER
     Dosage: AS NECESSARY
  3. ROSUVASTATIN. [Concomitant]
     Active Substance: ROSUVASTATIN
     Dates: start: 2018
  4. METOPROLOL. [Concomitant]
     Active Substance: METOPROLOL
     Dates: start: 2018
  5. VITAMINE A [Concomitant]
     Active Substance: RETINOL
     Dosage: AS NECESSARY
  6. DAFALGAN [Concomitant]
     Active Substance: ACETAMINOPHEN
     Dosage: AS NECESSARY
  7. TIVICAY [Concomitant]
     Active Substance: DOLUTEGRAVIR SODIUM
     Dates: start: 2014
  8. DIAMICRON [Concomitant]
     Active Substance: GLICLAZIDE
     Dates: start: 2017
  9. VI-DE 3 [Concomitant]
     Active Substance: CHOLECALCIFEROL
     Dates: start: 2017
  10. ASPIRIN CARDIO [Concomitant]
     Active Substance: ASPIRIN
     Dates: start: 2018
  11. CIPRALEX [Concomitant]
     Active Substance: ESCITALOPRAM OXALATE
     Dates: start: 2011
  12. TRUVADA [Concomitant]
     Active Substance: EMTRICITABINE\TENOFOVIR DISOPROXIL FUMARATE
     Dates: start: 20070614, end: 20170518
  13. DESCOVY [Suspect]
     Active Substance: EMTRICITABINE\TENOFOVIR ALAFENAMIDE FUMARATE
     Indication: PRODUCT USED FOR UNKNOWN INDICATION
     Dosage: 1 DF, QD
     Route: 048
     Dates: start: 2017
  14. DESCOVY [Suspect]
     Active Substance: EMTRICITABINE\TENOFOVIR ALAFENAMIDE FUMARATE
     Dosage: 200/25 MG
     Route: 048
     Dates: start: 20170518
  15. VITAMINE A [Concomitant]
     Active Substance: RETINOL
     Dosage: AS NECESSARY
  16. DAFALGAN [Concomitant]
     Active Substance: ACETAMINOPHEN
     Dosage: AS NECESSARY
  17. VISCOTEARS [Concomitant]
     Active Substance: CARBOMER
     Dosage: AS NECESSARY
  18. JANUMET [Concomitant]
     Active Substance: METFORMIN HYDROCHLORIDE\SITAGLIPTIN PHOSPHATE
  19. LYRICA [Concomitant]
     Active Substance: PREGABALIN
     Dates: start: 20180608

REACTIONS (1)
  - Retinal toxicity [Not Recovered/Not Resolved]

NARRATIVE: CASE EVENT DATE: 201806
